FAERS Safety Report 25263491 (Version 2)
Quarter: 2025Q3

REPORT INFORMATION
  Report Type: Spontaneous
  Country: IR (occurrence: IR)
  Receive Date: 20250502
  Receipt Date: 20250715
  Transmission Date: 20251020
  Serious: Yes (Other)
  Sender: BIOGEN
  Company Number: IR-BIOGEN-2025BI01309376

PATIENT
  Sex: Male

DRUGS (1)
  1. TYSABRI [Suspect]
     Active Substance: NATALIZUMAB
     Indication: Relapsing-remitting multiple sclerosis
     Dosage: 300 MG/15ML
     Route: 050
     Dates: start: 202501

REACTIONS (2)
  - Blindness transient [Recovered/Resolved]
  - Vertigo [Recovered/Resolved]
